FAERS Safety Report 15893414 (Version 1)
Quarter: 2019Q1

REPORT INFORMATION
  Report Type: Spontaneous
  Country: FR (occurrence: FR)
  Receive Date: 20190130
  Receipt Date: 20190130
  Transmission Date: 20190417
  Serious: Yes (Hospitalization)
  Sender: FDA-Public Use
  Company Number: FR-SUN PHARMACEUTICAL INDUSTRIES LTD-2019RR-197389

PATIENT
  Age: 17 Year
  Sex: Female

DRUGS (4)
  1. PAROXETINE. [Suspect]
     Active Substance: PAROXETINE
     Indication: TOXICITY TO VARIOUS AGENTS
     Dosage: IN TOTAL
     Route: 048
     Dates: start: 20171029, end: 20171029
  2. ALPRAZOLAM. [Suspect]
     Active Substance: ALPRAZOLAM
     Indication: TOXICITY TO VARIOUS AGENTS
     Dosage: IN TOTAL
     Route: 048
     Dates: start: 20171029, end: 20171029
  3. LAROXYL [Suspect]
     Active Substance: AMITRIPTYLINE HYDROCHLORIDE
     Indication: TOXICITY TO VARIOUS AGENTS
     Dosage: IN TOTAL
     Route: 048
     Dates: start: 20171029, end: 20171029
  4. PRAZEPAM [Suspect]
     Active Substance: PRAZEPAM
     Indication: TOXICITY TO VARIOUS AGENTS
     Dosage: IN TOTAL
     Route: 048
     Dates: start: 20171029, end: 20171029

REACTIONS (3)
  - Coma [Recovered/Resolved]
  - Mydriasis [Recovered/Resolved]
  - Tachycardia [Recovered/Resolved]

NARRATIVE: CASE EVENT DATE: 20171029
